FAERS Safety Report 21229723 (Version 1)
Quarter: 2022Q3

REPORT INFORMATION
  Report Type: Spontaneous
  Country: GB (occurrence: GB)
  Receive Date: 20220818
  Receipt Date: 20220818
  Transmission Date: 20221026
  Serious: Yes (Hospitalization, Other)
  Sender: FDA-Public Use
  Company Number: GB-MHRA-MED-202208171433537550-WZNGH

PATIENT
  Age: 89 Year
  Sex: Female

DRUGS (4)
  1. EMPAGLIFLOZIN [Suspect]
     Active Substance: EMPAGLIFLOZIN
     Indication: Cardiac failure
     Dates: start: 20220719, end: 20220812
  2. BISOPROLOL [Concomitant]
     Active Substance: BISOPROLOL
     Indication: Atrial fibrillation
  3. CANDESARTAN [Concomitant]
     Active Substance: CANDESARTAN
     Indication: Hypertension
  4. DIGOXIN [Concomitant]
     Active Substance: DIGOXIN
     Indication: Atrial fibrillation

REACTIONS (1)
  - Dyskinesia [Recovering/Resolving]

NARRATIVE: CASE EVENT DATE: 20220806
